FAERS Safety Report 4565833-X (Version None)
Quarter: 2005Q1

REPORT INFORMATION
  Report Type: 
  Country: None (occurrence: None)
  Receive Date: 20050131
  Receipt Date: 20050124
  Transmission Date: 20050727
  Serious: Yes (Disabling)
  Sender: FDA-Public Use
  Company Number: GB-ABBOTT-05P-167-0288050-00

PATIENT
  Age: 36 Year
  Sex: Female
  Weight: 104 kg

DRUGS (3)
  1. SIBUTRAMINE [Suspect]
     Indication: OBESITY
     Route: 048
     Dates: start: 20040607, end: 20041201
  2. METFORMIN HCL [Concomitant]
     Indication: POLYCYSTIC OVARIES
     Dates: start: 20050109
  3. METFORMIN HCL [Concomitant]
     Indication: DIABETES MELLITUS NON-INSULIN-DEPENDENT

REACTIONS (1)
  - DYSPHASIA [None]
